FAERS Safety Report 25386456 (Version 2)
Quarter: 2025Q2

REPORT INFORMATION
  Report Type: Spontaneous
  Country: GB (occurrence: GB)
  Receive Date: 20250602
  Receipt Date: 20250606
  Transmission Date: 20250716
  Serious: Yes (Other)
  Sender: ORGANON
  Company Number: None

PATIENT
  Age: 60 Year
  Sex: Female

DRUGS (3)
  1. MOMETASONE FUROATE [Suspect]
     Active Substance: MOMETASONE FUROATE
     Indication: Sinusitis
     Dosage: 2 SPRAYS UP EACH NOSTRIL
     Route: 045
     Dates: start: 2025
  2. MOMETASONE FUROATE [Suspect]
     Active Substance: MOMETASONE FUROATE
     Dosage: 2 SPRAYS UP EACH NOSTRIL
     Route: 045
  3. MOMETASONE FUROATE [Suspect]
     Active Substance: MOMETASONE FUROATE
     Dosage: 2 SPRAYS UP EACH NOSTRIL
     Route: 045

REACTIONS (10)
  - Rhinalgia [Not Recovered/Not Resolved]
  - Deafness [Unknown]
  - Sinus congestion [Unknown]
  - Nasal crusting [Unknown]
  - Feeling cold [Unknown]
  - Nasal discomfort [Unknown]
  - Epistaxis [Unknown]
  - Nasal mucosal disorder [Unknown]
  - Nasal septum disorder [Unknown]
  - Product use in unapproved indication [Unknown]

NARRATIVE: CASE EVENT DATE: 20250101
